FAERS Safety Report 15958325 (Version 3)
Quarter: 2019Q4

REPORT INFORMATION
  Report Type: Report from Study
  Country: US (occurrence: US)
  Receive Date: 20190213
  Receipt Date: 20191106
  Transmission Date: 20200122
  Serious: Yes (Hospitalization)
  Sender: FDA-Public Use
  Company Number: US-GILEAD-2019-0385411

PATIENT
  Age: 63 Year
  Sex: Male
  Weight: 87.8 kg

DRUGS (23)
  1. VALACYCLOVIR [Concomitant]
     Active Substance: VALACYCLOVIR HYDROCHLORIDE
     Dosage: 500,MG,DAILY
     Route: 048
     Dates: start: 20190108
  2. FILGRASTIM [Concomitant]
     Active Substance: FILGRASTIM
     Dosage: 480,UG,EVERY OTHER DAY
     Route: 058
     Dates: start: 20190108, end: 20190116
  3. VITAMIN D [COLECALCIFEROL] [Concomitant]
     Active Substance: CHOLECALCIFEROL
     Dosage: 1000,IU,DAILY
     Route: 048
     Dates: start: 20151130
  4. MULTIVITAMINS [VITAMINS NOS] [Concomitant]
     Active Substance: VITAMINS
     Indication: SUPPLEMENTATION THERAPY
  5. SEROQUEL [Concomitant]
     Active Substance: QUETIAPINE FUMARATE
     Indication: INSOMNIA
  6. MESNA. [Suspect]
     Active Substance: MESNA
     Dosage: 210
     Route: 048
     Dates: start: 20190103, end: 20190105
  7. TRIAMCINOLONE ACETONIDE. [Concomitant]
     Active Substance: TRIAMCINOLONE ACETONIDE
  8. VITAMIN C [Concomitant]
     Active Substance: ASCORBIC ACID
     Dosage: 500,MG,DAILY
     Route: 048
     Dates: start: 20161130
  9. LOVENOX [Concomitant]
     Active Substance: ENOXAPARIN SODIUM
     Indication: THROMBOSIS PROPHYLAXIS
     Dosage: 40,MG,DAILY
     Route: 058
     Dates: start: 20190108, end: 20190122
  10. OMEGA 3 [FISH OIL] [Concomitant]
     Active Substance: FISH OIL
     Dosage: 1000,MG,DAILY
     Route: 048
  11. FLUDARABINE [Suspect]
     Active Substance: FLUDARABINE PHOSPHATE
     Indication: BONE MARROW CONDITIONING REGIMEN
     Dosage: 63 MG, QD
     Route: 042
     Dates: start: 20190103, end: 20190105
  12. VITAMIN E [Concomitant]
     Active Substance: .ALPHA.-TOCOPHEROL
     Dosage: ,,
     Route: 048
     Dates: start: 20190102
  13. FLUCONAZOLE. [Concomitant]
     Active Substance: FLUCONAZOLE
     Indication: ANTIFUNGAL PROPHYLAXIS
     Dosage: 400,MG,DAILY
     Route: 048
     Dates: start: 20190108
  14. MESNA. [Suspect]
     Active Substance: MESNA
     Dosage: 420
     Route: 048
     Dates: start: 20190103, end: 20190105
  15. LEVOFLOXACIN. [Concomitant]
     Active Substance: LEVOFLOXACIN
     Indication: ANTIBIOTIC PROPHYLAXIS
  16. CLARITIN [Concomitant]
     Active Substance: LORATADINE
  17. FAMOTIDINE. [Concomitant]
     Active Substance: FAMOTIDINE
     Indication: GASTROOESOPHAGEAL REFLUX DISEASE
     Dosage: 20,MG,DAILY
     Route: 048
     Dates: start: 20190124
  18. AXICABTAGENE CILOLEUCEL [Suspect]
     Active Substance: AXICABTAGENE CILOLEUCEL
     Indication: NON-HODGKIN^S LYMPHOMA UNSPECIFIED HISTOLOGY INDOLENT
     Dosage: 68 ML, ONCE
     Route: 042
     Dates: start: 20190108, end: 20190108
  19. CYCLOPHOSPHAMIDE. [Suspect]
     Active Substance: CYCLOPHOSPHAMIDE
     Indication: BONE MARROW CONDITIONING REGIMEN
     Dosage: 1050 MG, QD
     Route: 042
     Dates: start: 20190103, end: 20190105
  20. NYSTATIN. [Concomitant]
     Active Substance: NYSTATIN
  21. FLAXSEED OIL [LINUM USITATISSIMUM OIL] [Concomitant]
     Dosage: UNK
     Dates: start: 20161130
  22. MELATONIN [Concomitant]
     Active Substance: MELATONIN
     Indication: INSOMNIA
  23. MESNA. [Suspect]
     Active Substance: MESNA
     Indication: PROPHYLAXIS
     Dosage: 210
     Route: 048
     Dates: start: 20190103, end: 20190105

REACTIONS (6)
  - Neutropenia [Recovered/Resolved]
  - Hypotension [Recovered/Resolved]
  - Neutropenia [Recovered/Resolved with Sequelae]
  - Cytokine release syndrome [Recovered/Resolved]
  - Pyrexia [Recovered/Resolved]
  - CAR T-cell-related encephalopathy syndrome [Recovered/Resolved]

NARRATIVE: CASE EVENT DATE: 20190111
